FAERS Safety Report 4411223-X (Version None)
Quarter: 2004Q3

REPORT INFORMATION
  Report Type: 
  Country: None (occurrence: None)
  Receive Date: 20040727
  Receipt Date: 20040713
  Transmission Date: 20050211
  Serious: Yes (Death)
  Sender: FDA-Public Use
  Company Number: ZA-JNJFOC-20040706063

PATIENT
  Age: 66 Year
  Sex: Female

DRUGS (4)
  1. DOXORUBICIN HYDROCHLORIDE [Suspect]
     Indication: BREAST CANCER
     Dosage: 30 MG/M2, 1 IN 21 DAY, INTRAVENOUS
     Route: 042
  2. TAXOL [Suspect]
     Indication: BREAST CANCER
     Dosage: 175 MG/M2, 1 IN 21 DAY
  3. DEXAMETHASONE [Concomitant]
  4. RANITIDINE [Concomitant]

REACTIONS (1)
  - HEPATORENAL FAILURE [None]
